FAERS Safety Report 5425069-7 (Version None)
Quarter: 2007Q3

REPORT INFORMATION
  Report Type: 
  Country: None (occurrence: None)
  Receive Date: 20070824
  Receipt Date: 20070815
  Transmission Date: 20080115
  Serious: Yes (Death)
  Sender: FDA-Public Use
  Company Number: US-JNJFOC-20060805228

PATIENT
  Sex: Male
  Weight: 115.67 kg

DRUGS (7)
  1. DURAGESIC-100 [Suspect]
     Indication: DRUG USE FOR UNKNOWN INDICATION
     Route: 062
  2. ALBUTEROL [Concomitant]
  3. FLOVENT [Concomitant]
  4. VIOXX [Concomitant]
  5. CEFAZOLIN [Concomitant]
     Route: 042
  6. MARCAINE/EPINEPHRINE [Concomitant]
     Indication: LOCAL ANAESTHESIA
  7. LIDOCAINE W/ EPINEPHRINE [Concomitant]
     Indication: LOCAL ANAESTHESIA

REACTIONS (3)
  - DEVICE LEAKAGE [None]
  - OVERDOSE [None]
  - RESPIRATORY FAILURE [None]
